FAERS Safety Report 4311607-4 (Version None)
Quarter: 2004Q1

REPORT INFORMATION
  Report Type: 
  Country: None (occurrence: None)
  Receive Date: 20040302
  Receipt Date: 20031117
  Transmission Date: 20041129
  Serious: No
  Sender: FDA-Public Use
  Company Number: 200328557BWH

PATIENT
  Age: 79 Year
  Sex: Male
  Weight: 88.4514 kg

DRUGS (5)
  1. LEVITRA [Suspect]
     Indication: ERECTILE DYSFUNCTION
     Dosage: 20 MG, TOTAL DAILY, ORAL
     Route: 048
  2. PACERONE [Concomitant]
  3. SYNTHROID [Concomitant]
  4. ASPIRIN [Concomitant]
  5. LEXAPRO [Concomitant]

REACTIONS (1)
  - ERECTILE DYSFUNCTION [None]
